FAERS Safety Report 10956035 (Version 1)
Quarter: 2015Q1

REPORT INFORMATION
  Report Type: Spontaneous
  Country: US (occurrence: None)
  Receive Date: 20150309
  Receipt Date: 20150309
  Transmission Date: 20150721
  Serious: Yes (Other)
  Sender: FDA-Public Use
  Company Number: A14-0064E

PATIENT
  Age: 9 Year
  Sex: Male

DRUGS (2)
  1. A: NEW POLLEN + WEED MX [Suspect]
     Active Substance: ALLERGENIC EXTRACTS
     Indication: IMMUNE ENHANCEMENT THERAPY
     Dates: start: 20141009
  2. B: MOLD MIX #10 [Suspect]
     Active Substance: ALLERGENIC EXTRACTS
     Indication: IMMUNE ENHANCEMENT THERAPY
     Dates: start: 20141009

REACTIONS (4)
  - Therapy change [None]
  - Cough [None]
  - Treatment noncompliance [None]
  - Inappropriate schedule of drug administration [None]

NARRATIVE: CASE EVENT DATE: 20141009
